FAERS Safety Report 11158059 (Version 1)
Quarter: 2015Q2

REPORT INFORMATION
  Report Type: Spontaneous
  Country: US (occurrence: US)
  Receive Date: 20150603
  Receipt Date: 20150603
  Transmission Date: 20150821
  Serious: Yes (Other)
  Sender: FDA-Public Use
  Company Number: US-CIPLA LTD.-2015US04245

PATIENT

DRUGS (4)
  1. ETOSID [Suspect]
     Active Substance: ETOPOSIDE
     Indication: SMALL CELL LUNG CANCER EXTENSIVE STAGE
     Dosage: 100 MG/M2, QD ON DAYS 1 THROUGH 3 EVERY 21 DAYS FOR FOUR TO SIX CYCLES
     Route: 065
  2. SUNITINIB [Suspect]
     Active Substance: SUNITINIB
     Indication: SMALL CELL LUNG CANCER EXTENSIVE STAGE
     Dosage: 150 MG ON DAY 1 (LOADING DOSE) AND THEN 37.5 MG PER DAY
     Route: 065
  3. CARBOPLATIN. [Suspect]
     Active Substance: CARBOPLATIN
     Indication: SMALL CELL LUNG CANCER EXTENSIVE STAGE
     Dosage: AREA UNDER THE CURVE OF 5 ON DAY 1
     Route: 065
  4. CISPLATIN. [Suspect]
     Active Substance: CISPLATIN
     Indication: SMALL CELL LUNG CANCER EXTENSIVE STAGE
     Dosage: 80 MG/M2, ON DAY 1
     Route: 065

REACTIONS (3)
  - Hypocalcaemia [Unknown]
  - Lipase increased [Unknown]
  - Pancreatitis [Unknown]
